FAERS Safety Report 5065621-4 (Version None)
Quarter: 2006Q3

REPORT INFORMATION
  Report Type: 
  Country: None (occurrence: None)
  Receive Date: 20060714
  Receipt Date: 20060501
  Transmission Date: 20061208
  Serious: No
  Sender: FDA-Public Use
  Company Number: 2006SP002072

PATIENT
  Age: 63 Year
  Sex: Female

DRUGS (5)
  1. LUNESTA [Suspect]
     Indication: ABNORMAL DREAMS
     Dosage: 3 MG;HS;ORAL
     Route: 048
     Dates: start: 20060301, end: 20060516
  2. TRAZODONE HCL [Concomitant]
  3. KLONOPIN [Concomitant]
  4. LEXAPRO [Concomitant]
  5. RITALIN [Concomitant]

REACTIONS (1)
  - ERYTHEMA NODOSUM [None]
